FAERS Safety Report 5257397-2 (Version None)
Quarter: 2007Q1

REPORT INFORMATION
  Report Type: 
  Country: None (occurrence: None)
  Receive Date: 20070307
  Receipt Date: 20060731
  Transmission Date: 20070707
  Serious: No
  Sender: FDA-Public Use
  Company Number: US-GLAXOSMITHKLINE-A0612668A

PATIENT
  Age: 21 Year
  Sex: Female
  Weight: 69.5 kg

DRUGS (2)
  1. REQUIP [Suspect]
     Indication: RESTLESS LEGS SYNDROME
     Route: 048
     Dates: start: 20060420, end: 20060507
  2. NO CONCURRENT MEDICATION [Concomitant]

REACTIONS (1)
  - RESTLESS LEGS SYNDROME [None]
